FAERS Safety Report 8104344-1 (Version None)
Quarter: 2011Q4

REPORT INFORMATION
  Report Type: 
  Country: None (occurrence: None)
  Receive Date: 20111222
  Receipt Date: 20110822
  Transmission Date: 20120403
  Serious: Yes (Hospitalization)
  Sender: FDA-Public Use
  Company Number: UTC-009645

PATIENT
  Age: 74 Year
  Sex: Female
  Weight: 56.2 kg

DRUGS (4)
  1. TYVASO [Suspect]
     Indication: HYPERTENSION
     Dosage: 216 MCG (4 IN 1 D),INHALATION
     Route: 055
     Dates: start: 20110412, end: 20110815
  2. COUMADIN [Concomitant]
  3. OXYGEN (OXYGEN) [Concomitant]
  4. DIURETICS (DIURETICS) [Concomitant]

REACTIONS (3)
  - CARDIAC FAILURE CONGESTIVE [None]
  - CHEST PAIN [None]
  - OROPHARYNGEAL PAIN [None]
